FAERS Safety Report 24537373 (Version 1)
Quarter: 2024Q4

REPORT INFORMATION
  Report Type: Report from Study
  Country: CZ (occurrence: CZ)
  Receive Date: 20241022
  Receipt Date: 20241022
  Transmission Date: 20250114
  Serious: Yes (Hospitalization)
  Sender: ABBVIE
  Company Number: CZ-ABBVIE-5969108

PATIENT
  Age: 54 Year
  Sex: Female

DRUGS (1)
  1. RINVOQ [Suspect]
     Active Substance: UPADACITINIB
     Indication: Ankylosing spondylitis
     Route: 048
     Dates: start: 20240624, end: 20240826

REACTIONS (1)
  - Diastasis recti abdominis [Recovered/Resolved]

NARRATIVE: CASE EVENT DATE: 20240902
